FAERS Safety Report 9164026 (Version 3)
Quarter: 2013Q1

REPORT INFORMATION
  Report Type: Spontaneous
  Country: US (occurrence: US)
  Receive Date: 20130314
  Receipt Date: 20130321
  Transmission Date: 20140127
  Serious: Yes (Other)
  Sender: FDA-Public Use
  Company Number: US-RB-051014-13

PATIENT
  Age: 29 Year
  Sex: Female

DRUGS (5)
  1. MUCINEX FAST-MAX SEVERE CONGESTION AND COLD [Suspect]
     Indication: PRODUCT USED FOR UNKNOWN INDICATION
     Dosage: 2 DOSES, X2 CAPLETS EACH DOSE 4 HOURS APART.
     Route: 048
     Dates: start: 20130302
  2. MUCINEX FAST-MAX SEVERE CONGESTION AND COLD [Suspect]
  3. MUCINEX FAST-MAX SEVERE CONGESTION AND COLD [Suspect]
  4. MUCINEX FAST-MAX SEVERE CONGESTION AND COLD [Suspect]
  5. BIRTH CONTROL PILLS [Concomitant]
     Route: 048

REACTIONS (2)
  - Epistaxis [Recovered/Resolved]
  - Nasal dryness [Unknown]
